FAERS Safety Report 4812092-6 (Version None)
Quarter: 2005Q4

REPORT INFORMATION
  Report Type: 
  Country: None (occurrence: None)
  Receive Date: 20051028
  Receipt Date: 20021106
  Transmission Date: 20060501
  Serious: No
  Sender: FDA-Public Use
  Company Number: US-GLAXOSMITHKLINE-A0385902A

PATIENT
  Age: 61 Year
  Sex: Female

DRUGS (8)
  1. ADVAIR DISKUS 100/50 [Suspect]
     Indication: ASTHMA
     Dosage: 1PUFF TWICE PER DAY
     Route: 055
     Dates: start: 20010101
  2. FLONASE [Concomitant]
  3. PATANOL [Concomitant]
     Dosage: 2DROP TWICE PER DAY
  4. ALBUTEROL [Concomitant]
  5. MULTI-VITAMIN [Concomitant]
  6. VITAMIN E [Concomitant]
  7. VITAMIN B COMPLEX CAP [Concomitant]
  8. ASCORBIC ACID [Concomitant]

REACTIONS (4)
  - COUGH [None]
  - DYSPNOEA [None]
  - ORAL CANDIDIASIS [None]
  - PHARMACEUTICAL PRODUCT COMPLAINT [None]
